FAERS Safety Report 9184563 (Version 1)
Quarter: 2013Q1

REPORT INFORMATION
  Report Type: Spontaneous
  Country: ES (occurrence: ES)
  Receive Date: 20130322
  Receipt Date: 20130322
  Transmission Date: 20140127
  Serious: Yes (Death, Hospitalization, Other)
  Sender: FDA-Public Use
  Company Number: ES-ELI_LILLY_AND_COMPANY-ES201303007467

PATIENT
  Age: 69 Year
  Sex: Male
  Weight: 78 kg

DRUGS (13)
  1. FORSTEO [Suspect]
     Indication: OSTEOPOROSIS
     Dosage: 20 UG, QD
     Route: 058
     Dates: start: 20090609, end: 201101
  2. DACORTIN [Concomitant]
     Indication: ARTHRITIS
     Dosage: 10 MG, BID
     Route: 048
  3. RIFALDIN [Concomitant]
     Dosage: UNK, QD
     Route: 048
  4. NOVONORM [Concomitant]
     Dosage: UNK, EVERY 8 HRS
     Route: 048
  5. OMEPRAZOL [Concomitant]
     Indication: PROPHYLAXIS
     Dosage: UNK, BID
     Route: 048
  6. CARVEDILOL [Concomitant]
     Route: 048
  7. METFORMINA [Concomitant]
     Indication: DIABETES MELLITUS
     Dosage: UNK, EVERY 8 HRS
     Route: 048
  8. SEPTRIN [Concomitant]
     Dosage: UNK, QD
     Route: 048
  9. ZYVOXID                                 /GFR/ [Concomitant]
     Dosage: UNK, BID
     Route: 048
  10. ADIRO [Concomitant]
     Dosage: UNK, QD
     Route: 048
  11. COLCHIMAX [Concomitant]
  12. ALOPURINOL [Concomitant]
     Route: 048
  13. PRAVASTATINA [Concomitant]
     Route: 048

REACTIONS (11)
  - Sepsis [Fatal]
  - Myocardial infarction [Not Recovered/Not Resolved]
  - Enterococcal infection [Not Recovered/Not Resolved]
  - Cholecystitis [Not Recovered/Not Resolved]
  - Pancreatitis acute [Not Recovered/Not Resolved]
  - Adrenal insufficiency [Not Recovered/Not Resolved]
  - Gastrointestinal haemorrhage [Unknown]
  - Chest pain [Unknown]
  - Dyspnoea [Unknown]
  - Haematemesis [Unknown]
  - Hyponatraemia [Unknown]
